FAERS Safety Report 8438405-4 (Version None)
Quarter: 2012Q2

REPORT INFORMATION
  Report Type: 
  Country: None (occurrence: None)
  Receive Date: 20120614
  Receipt Date: 20120605
  Transmission Date: 20120825
  Serious: Yes (Hospitalization, Other)
  Sender: FDA-Public Use
  Company Number: US-ELI_LILLY_AND_COMPANY-US201203006904

PATIENT
  Sex: Female
  Weight: 86.168 kg

DRUGS (16)
  1. LOVAZA [Concomitant]
  2. CALCIUM CITRATE [Concomitant]
     Dosage: 600 MG, UNK
  3. FISH OIL [Concomitant]
  4. VITAMIN D [Concomitant]
     Dosage: 6000 IU, UNK
  5. NEXIUM [Concomitant]
     Dosage: 40 MG, QD
  6. LOSARTAN POTASSIUM AND HYDROCHLOROTHIAZIDE [Concomitant]
  7. NASONEX [Concomitant]
  8. BIOFLEX                            /00943602/ [Concomitant]
  9. CORTISONE ACETATE [Concomitant]
  10. FORTEO [Suspect]
     Indication: OSTEOPOROSIS POSTMENOPAUSAL
     Dosage: 20 UG, QD
     Dates: start: 20120208
  11. ALLEGRA [Concomitant]
     Dosage: 180 MG, UNK
  12. FORTEO [Suspect]
     Dosage: 20 UG, QD
     Dates: end: 20120404
  13. CRESTOR [Concomitant]
  14. METFORMIN HCL [Concomitant]
     Dosage: 500 MG, BID
  15. LEVOTHYROXINE SODIUM [Concomitant]
  16. SINGULAIR [Concomitant]

REACTIONS (3)
  - IMPAIRED HEALING [None]
  - HEPATIC ENZYME INCREASED [None]
  - OSTEONECROSIS [None]
